FAERS Safety Report 25472598 (Version 1)
Quarter: 2025Q2

REPORT INFORMATION
  Report Type: Other
  Country: FR (occurrence: FR)
  Receive Date: 20250624
  Receipt Date: 20250624
  Transmission Date: 20250716
  Serious: Yes (Hospitalization)
  Sender: ZYDUS PHARM
  Company Number: None

PATIENT

DRUGS (1)
  1. LANSOPRAZOLE [Suspect]
     Active Substance: LANSOPRAZOLE
     Indication: Gastrooesophageal reflux disease
     Route: 048

REACTIONS (3)
  - Hypocalcaemia [Recovered/Resolved]
  - Myoclonus [Recovered/Resolved]
  - Hypomagnesaemia [Unknown]

NARRATIVE: CASE EVENT DATE: 20250517
